FAERS Safety Report 19829509 (Version 2)
Quarter: 2021Q3

REPORT INFORMATION
  Report Type: Report from Study
  Country: FR (occurrence: FR)
  Receive Date: 20210914
  Receipt Date: 20210920
  Transmission Date: 20211014
  Serious: Yes (Disabling, Other)
  Sender: FDA-Public Use
  Company Number: NVSC2021FR195611

PATIENT
  Age: 61 Year
  Sex: Female

DRUGS (4)
  1. DAUNORUBICIN [Suspect]
     Active Substance: DAUNORUBICIN
     Indication: MYELODYSPLASTIC SYNDROME
     Dosage: 100 MG
     Route: 065
     Dates: start: 20210707, end: 20210709
  2. CYTARABINE. [Suspect]
     Active Substance: CYTARABINE
     Indication: MYELODYSPLASTIC SYNDROME
     Dosage: 336 MG, QD
     Route: 065
     Dates: start: 20210707, end: 20210714
  3. CYTARABINE. [Suspect]
     Active Substance: CYTARABINE
     Dosage: 3000 MG, QD
     Route: 065
     Dates: start: 20210817
  4. RYDAPT [Suspect]
     Active Substance: MIDOSTAURIN
     Indication: MYELODYSPLASTIC SYNDROME
     Dosage: 100 MG, QD
     Route: 065
     Dates: start: 20210715

REACTIONS (8)
  - Dysarthria [Unknown]
  - Cerebellar syndrome [Unknown]
  - Gait inability [Unknown]
  - Ataxia [Unknown]
  - Encephalopathy [Unknown]
  - Encephalitis [Not Recovered/Not Resolved]
  - Dysstasia [Unknown]
  - Product use in unapproved indication [Unknown]

NARRATIVE: CASE EVENT DATE: 20210823
